FAERS Safety Report 25641585 (Version 1)
Quarter: 2025Q3

REPORT INFORMATION
  Report Type: Spontaneous
  Country: JP (occurrence: JP)
  Receive Date: 20250804
  Receipt Date: 20250804
  Transmission Date: 20251020
  Serious: Yes (Other)
  Sender: MERCK SHARP & DOHME LLC
  Company Number: JP-009507513-2315249

PATIENT
  Age: 65 Year
  Sex: Male

DRUGS (3)
  1. KEYTRUDA [Suspect]
     Active Substance: PEMBROLIZUMAB
     Indication: Bile duct cancer
     Route: 041
     Dates: start: 202506
  2. CISPLATIN [Suspect]
     Active Substance: CISPLATIN
     Dates: start: 202506, end: 2025
  3. GEMCITABINE [Suspect]
     Active Substance: GEMCITABINE
     Dates: start: 202506

REACTIONS (2)
  - Renal impairment [Unknown]
  - Nausea [Recovered/Resolved]

NARRATIVE: CASE EVENT DATE: 20250101
